FAERS Safety Report 9408120 (Version 3)
Quarter: 2013Q3

REPORT INFORMATION
  Report Type: Report from Study
  Country: US (occurrence: US)
  Receive Date: 20130718
  Receipt Date: 20130913
  Transmission Date: 20140515
  Serious: Yes (Other)
  Sender: FDA-Public Use
  Company Number: US-ABBOTT-13P-163-1118418-00

PATIENT
  Age: 35 Year
  Sex: Female

DRUGS (7)
  1. HUMIRA [Suspect]
     Indication: RHEUMATOID ARTHRITIS
     Dates: start: 2008
  2. METHOTREXATE [Concomitant]
     Indication: RHEUMATOID ARTHRITIS
  3. LEXAPRO [Concomitant]
     Indication: DEPRESSION
  4. REQUIP [Concomitant]
     Indication: RESTLESS LEGS SYNDROME
  5. LORTAB [Concomitant]
     Indication: PAIN
     Dosage: 10 MG Q4H PRN
  6. XANAX [Concomitant]
     Indication: ANXIETY
  7. GABAPENTIN [Concomitant]
     Indication: CARPAL TUNNEL SYNDROME
     Dosage: 300MG QAM, 600MG QPM

REACTIONS (9)
  - Carpal tunnel syndrome [Not Recovered/Not Resolved]
  - Pyrexia [Recovered/Resolved]
  - Carpal tunnel syndrome [Not Recovered/Not Resolved]
  - Pyrexia [Not Recovered/Not Resolved]
  - Hot flush [Not Recovered/Not Resolved]
  - Nausea [Not Recovered/Not Resolved]
  - Insomnia [Not Recovered/Not Resolved]
  - Bone pain [Not Recovered/Not Resolved]
  - Inappropriate schedule of drug administration [Recovered/Resolved]
